FAERS Safety Report 5268191-0 (Version None)
Quarter: 2007Q1

REPORT INFORMATION
  Report Type: 
  Country: None (occurrence: None)
  Receive Date: 20070319
  Receipt Date: 20070305
  Transmission Date: 20070707
  Serious: Yes (Other)
  Sender: FDA-Public Use
  Company Number: FRWYE509705FEB07

PATIENT
  Age: 44 Year
  Sex: Male

DRUGS (9)
  1. ENBREL [Suspect]
     Indication: ANKYLOSING SPONDYLITIS
     Route: 058
     Dates: start: 20060501, end: 20060901
  2. DEPAKENE [Concomitant]
     Dosage: UNKNOWN
     Route: 048
  3. VENTOLIN [Concomitant]
     Indication: ASTHMA
     Dosage: 2 DOSES TOTAL MONTHLY
  4. OXYCONTIN [Concomitant]
     Dosage: UNKNOWN
     Route: 048
  5. PERISTALTINE [Concomitant]
     Dosage: UNKNOWN
     Route: 048
  6. TRANSIPEG [Concomitant]
     Dosage: UNKNOWN
     Route: 048
  7. TAHOR [Concomitant]
     Dosage: UNKNOWN
     Route: 048
  8. AVLOCARDYL [Concomitant]
     Indication: MIGRAINE
     Dosage: UNKNOWN
     Route: 048
     Dates: start: 20000101
  9. NEXIUM [Concomitant]
     Dosage: UNKNOWN

REACTIONS (8)
  - CAPILLARY LEAK SYNDROME [None]
  - CARBON MONOXIDE DIFFUSING CAPACITY DECREASED [None]
  - DYSPNOEA [None]
  - LUNG DISORDER [None]
  - OBSTRUCTIVE AIRWAYS DISORDER [None]
  - OEDEMA PERIPHERAL [None]
  - VITAL CAPACITY DECREASED [None]
  - WEIGHT INCREASED [None]
